FAERS Safety Report 5048494-5 (Version None)
Quarter: 2006Q3

REPORT INFORMATION
  Report Type: 
  Country: None (occurrence: None)
  Receive Date: 20060705
  Receipt Date: 20060622
  Transmission Date: 20061208
  Serious: Yes (Disabling)
  Sender: FDA-Public Use
  Company Number: 226584

PATIENT
  Age: 4 Year
  Sex: Female

DRUGS (1)
  1. NUTROPIN AQ [Suspect]
     Indication: TURNER'S SYNDROME
     Dosage: SEE IMAGE
     Route: 058
     Dates: start: 20060426

REACTIONS (5)
  - ABDOMINAL PAIN [None]
  - ANOREXIA [None]
  - HEADACHE [None]
  - NAUSEA [None]
  - VOMITING [None]
